FAERS Safety Report 10137348 (Version 2)
Quarter: 2014Q2

REPORT INFORMATION
  Report Type: Spontaneous
  Country: AR (occurrence: AR)
  Receive Date: 20140429
  Receipt Date: 20140429
  Transmission Date: 20141212
  Serious: Yes (Death)
  Sender: FDA-Public Use
  Company Number: AR-PFIZER INC-2013355421

PATIENT
  Age: 69 Year
  Sex: Female

DRUGS (1)
  1. XALKORI [Suspect]
     Indication: NON-SMALL CELL LUNG CANCER METASTATIC
     Dosage: 250 MG, 2X/DAY
     Dates: start: 20130812

REACTIONS (3)
  - Cardio-respiratory arrest [Fatal]
  - Disease progression [Not Recovered/Not Resolved]
  - Non-small cell lung cancer metastatic [Not Recovered/Not Resolved]
